FAERS Safety Report 6484674-X (Version None)
Quarter: 2009Q4

REPORT INFORMATION
  Report Type: 
  Country: None (occurrence: None)
  Receive Date: 20091204
  Receipt Date: 20091002
  Transmission Date: 20100525
  Serious: Yes (Other)
  Sender: FDA-Public Use
  Company Number: 8054183

PATIENT
  Age: 46 Year
  Sex: Male

DRUGS (3)
  1. KEPPRA [Suspect]
     Indication: CONVULSION
     Dosage: 1000 MG /D
  2. KEPPRA [Suspect]
     Indication: CONVULSION
     Dosage: 250 MG 2/D
  3. VIMPAT [Concomitant]

REACTIONS (3)
  - DECREASED APPETITE [None]
  - SENSORIMOTOR DISORDER [None]
  - WEIGHT DECREASED [None]
